FAERS Safety Report 5344314-X (Version None)
Quarter: 2007Q2

REPORT INFORMATION
  Report Type: 
  Country: None (occurrence: None)
  Receive Date: 20070604
  Receipt Date: 20070528
  Transmission Date: 20071010
  Serious: Yes (Death)
  Sender: FDA-Public Use
  Company Number: TH-ASTRAZENECA-2007AP03159

PATIENT
  Age: 21880 Day
  Sex: Female

DRUGS (3)
  1. IRESSA [Suspect]
     Indication: NON-SMALL CELL LUNG CANCER
     Route: 048
     Dates: start: 20070320, end: 20070521
  2. LASIX [Concomitant]
     Indication: OEDEMA
     Route: 048
     Dates: start: 20070521
  3. CALAMIDE [Concomitant]
     Indication: RASH
     Route: 003
     Dates: start: 20070510

REACTIONS (1)
  - RECTAL HAEMORRHAGE [None]
